FAERS Safety Report 9396425 (Version 1)
Quarter: 2013Q3

REPORT INFORMATION
  Report Type: Spontaneous
  Country: FR (occurrence: FR)
  Receive Date: 20130711
  Receipt Date: 20130711
  Transmission Date: 20140515
  Serious: Yes (Other)
  Sender: FDA-Public Use
  Company Number: FR-NICOBRDEVP-2013-11851

PATIENT
  Age: 18 Year
  Sex: Female

DRUGS (3)
  1. NICARDIPINE [Suspect]
     Indication: PRE-ECLAMPSIA
     Dosage: 3 MG, Q1H
     Route: 042
  2. MAGNESIUM [Suspect]
     Indication: PRE-ECLAMPSIA
     Dosage: 3 G, SINGLE
     Route: 040
  3. MAGNESIUM [Suspect]
     Dosage: 1 G, Q1H
     Route: 042

REACTIONS (6)
  - Cardiac failure acute [Recovered/Resolved]
  - Maternal exposure during pregnancy [Recovered/Resolved]
  - Ascites [None]
  - Oliguria [None]
  - Premature baby [None]
  - Caesarean section [None]
